FAERS Safety Report 8235695-8 (Version None)
Quarter: 2012Q1

REPORT INFORMATION
  Report Type: 
  Country: None (occurrence: None)
  Receive Date: 20120326
  Receipt Date: 20120323
  Transmission Date: 20120608
  Serious: Yes (Other)
  Sender: FDA-Public Use
  Company Number: JP-PFIZER INC-2012073922

PATIENT
  Age: 46 Year
  Sex: Female

DRUGS (3)
  1. ZOLPIDEM [Concomitant]
     Dosage: 10 MG/DAY
     Route: 048
  2. ZOLOFT [Suspect]
     Dosage: 50 MG, 1X/DAY
     Route: 048
  3. MEPTIN [Concomitant]
     Indication: ASTHMA
     Dosage: UNK
     Dates: start: 20120301, end: 20120301

REACTIONS (2)
  - CONVULSION [None]
  - ALTERED STATE OF CONSCIOUSNESS [None]
